FAERS Safety Report 12345976 (Version 1)
Quarter: 2016Q2

REPORT INFORMATION
  Report Type: Spontaneous
  Country: US (occurrence: None)
  Receive Date: 20160506
  Receipt Date: 20160506
  Transmission Date: 20160815
  Serious: Yes (Other)
  Sender: FDA-Public Use
  Company Number: None

PATIENT
  Age: 50 Year
  Sex: Male
  Weight: 114.5 kg

DRUGS (2)
  1. EPTIFIBATIDE. [Suspect]
     Active Substance: EPTIFIBATIDE
     Indication: CAROTID ARTERY STENT INSERTION
     Route: 042
     Dates: start: 20160503, end: 20160503
  2. TICAGRELOR [Suspect]
     Active Substance: TICAGRELOR
     Indication: CAROTID ARTERY STENT INSERTION
     Route: 048
     Dates: start: 20160503

REACTIONS (6)
  - Extravasation [None]
  - Induration [None]
  - Pain in extremity [None]
  - Joint swelling [None]
  - Haematoma [None]
  - Muscle disorder [None]

NARRATIVE: CASE EVENT DATE: 20160503
